FAERS Safety Report 22636289 (Version 2)
Quarter: 2023Q2

REPORT INFORMATION
  Report Type: Spontaneous
  Country: US (occurrence: US)
  Receive Date: 20230623
  Receipt Date: 20230627
  Transmission Date: 20230722
  Serious: Yes (Hospitalization)
  Sender: FDA-Public Use
  Company Number: US-PFIZER INC-202300228113

PATIENT
  Age: 50 Year
  Sex: Female

DRUGS (3)
  1. BLEOMYCIN SULFATE [Suspect]
     Active Substance: BLEOMYCIN SULFATE
     Indication: Endometrial cancer
     Dosage: 30 UNITS, CYCLIC, CD1
  2. ETOPOSIDE [Suspect]
     Active Substance: ETOPOSIDE
     Indication: Endometrial cancer
     Dosage: 100 MG/M2, CYCLIC, CD1-5
  3. CISPLATIN [Suspect]
     Active Substance: CISPLATIN
     Indication: Endometrial cancer
     Dosage: 20 MG/M2, CYCLIC, CD1-5

REACTIONS (5)
  - Febrile neutropenia [Recovered/Resolved]
  - Anaemia [Recovered/Resolved]
  - Supraventricular tachycardia [Recovered/Resolved]
  - Pancytopenia [Recovered/Resolved]
  - Off label use [Unknown]
